FAERS Safety Report 24581390 (Version 1)
Quarter: 2024Q4

REPORT INFORMATION
  Report Type: Spontaneous
  Country: US (occurrence: US)
  Receive Date: 20241105
  Receipt Date: 20241105
  Transmission Date: 20250115
  Serious: Yes (Other)
  Sender: PERRIGO
  Company Number: US-PERRIGO-24US010103

PATIENT
  Age: 26 Year
  Sex: Female

DRUGS (1)
  1. ACETAMINOPHEN [Suspect]
     Active Substance: ACETAMINOPHEN
     Indication: Product used for unknown indication
     Dosage: 21 GRAMS, UNKNOWN
     Route: 048

REACTIONS (3)
  - Acute hepatic failure [Unknown]
  - Drug-induced liver injury [Unknown]
  - Overdose [Unknown]
